FAERS Safety Report 4833303-7 (Version None)
Quarter: 2005Q4

REPORT INFORMATION
  Report Type: 
  Country: None (occurrence: None)
  Receive Date: 20051121
  Receipt Date: 20050726
  Transmission Date: 20060501
  Serious: Yes (Death)
  Sender: FDA-Public Use
  Company Number: US-ABBOTT-05P-163-0307040-00

PATIENT
  Sex: Female
  Weight: 59.474 kg

DRUGS (4)
  1. MAVIK [Suspect]
     Indication: CARDIAC FAILURE CONGESTIVE
     Dates: start: 20040430
  2. MAVIK [Suspect]
     Indication: HYPERTENSION
  3. TRICOR [Suspect]
     Indication: BLOOD TRIGLYCERIDES
     Dates: start: 20040318, end: 20041227
  4. COLCHICINE [Suspect]
     Indication: GOUT
     Dates: start: 20040117

REACTIONS (1)
  - CARDIAC FAILURE CONGESTIVE [None]
